FAERS Safety Report 19680224 (Version 5)
Quarter: 2021Q4

REPORT INFORMATION
  Report Type: Spontaneous
  Country: US (occurrence: US)
  Receive Date: 20210810
  Receipt Date: 20211029
  Transmission Date: 20220303
  Serious: Yes (Disabling, Other)
  Sender: FDA-Public Use
  Company Number: US-PFIZER INC-202100986166

PATIENT
  Age: 60 Year
  Sex: Female

DRUGS (1)
  1. XELJANZ XR [Suspect]
     Active Substance: TOFACITINIB CITRATE
     Indication: Rheumatoid arthritis
     Dosage: 11 MG

REACTIONS (5)
  - Musculoskeletal disorder [Unknown]
  - Dysgraphia [Unknown]
  - Pain [Unknown]
  - Gait disturbance [Unknown]
  - Mobility decreased [Unknown]
